FAERS Safety Report 7998268-8 (Version None)
Quarter: 2011Q4

REPORT INFORMATION
  Report Type: 
  Country: None (occurrence: None)
  Receive Date: 20111221
  Receipt Date: 20110602
  Transmission Date: 20120403
  Serious: No
  Sender: FDA-Public Use
  Company Number: US-GLAXOSMITHKLINE-A0930058A

PATIENT
  Age: 54 Year
  Sex: Male

DRUGS (7)
  1. LOVAZA [Suspect]
     Indication: BLOOD CHOLESTEROL INCREASED
     Dosage: 1G TWICE PER DAY
     Route: 048
     Dates: start: 20110523
  2. SIMVASTATIN [Concomitant]
  3. MULTI-VITAMIN [Concomitant]
  4. PROZAC [Concomitant]
  5. CYANOCOBALAMIN [Suspect]
     Indication: BLOOD CHOLESTEROL DECREASED
  6. SIMVASTATIN [Suspect]
     Indication: BLOOD CHOLESTEROL DECREASED
  7. AMBIEN [Concomitant]

REACTIONS (3)
  - GAIT DISTURBANCE [None]
  - PALPITATIONS [None]
  - SENSATION OF HEAVINESS [None]
